FAERS Safety Report 6435647-4 (Version None)
Quarter: 2009Q4

REPORT INFORMATION
  Report Type: 
  Country: None (occurrence: None)
  Receive Date: 20091110
  Receipt Date: 20080815
  Transmission Date: 20100525
  Serious: No
  Sender: FDA-Public Use
  Company Number: AECAN200800175

PATIENT
  Age: 44 Year
  Sex: Female

DRUGS (6)
  1. GAMUNEX [Suspect]
     Indication: ADRENOGENITAL SYNDROME
     Dosage: IV
     Route: 042
  2. GAMUNEX [Suspect]
     Indication: HIV TEST POSITIVE
     Dosage: IV
     Route: 042
  3. GAMUNEX [Suspect]
     Indication: SEPSIS
     Dosage: IV
     Route: 042
  4. GAMMAGARD [Suspect]
     Indication: ADRENOGENITAL SYNDROME
     Dosage: IV
     Route: 042
  5. GAMMAGARD [Suspect]
     Indication: HIV TEST POSITIVE
     Dosage: IV
     Route: 042
  6. GAMMAGARD [Suspect]
     Indication: SEPSIS
     Dosage: IV
     Route: 042

REACTIONS (1)
  - HAEMOLYTIC TRANSFUSION REACTION [None]
